FAERS Safety Report 8682310 (Version 8)
Quarter: 2014Q3

REPORT INFORMATION
  Report Type: Report from Study
  Country: JP (occurrence: JP)
  Receive Date: 20120725
  Receipt Date: 20140908
  Transmission Date: 20150326
  Serious: Yes (Hospitalization, Disabling)
  Sender: FDA-Public Use
  Company Number: JP-PFIZER INC-2012174295

PATIENT
  Age: 49 Year
  Sex: Female
  Weight: 54 kg

DRUGS (9)
  1. TAKEPRON [Concomitant]
     Active Substance: LANSOPRAZOLE
     Indication: METASTASES TO STOMACH
     Dosage: 30 MG, 1X/DAY
     Route: 048
     Dates: start: 20120620, end: 20120726
  2. NAUZELIN [Concomitant]
     Active Substance: DOMPERIDONE
     Indication: NAUSEA
     Dosage: 10 MG, 3X/DAY
     Route: 048
     Dates: start: 20120620, end: 20120710
  3. MAG-LAX [Concomitant]
     Active Substance: MAGNESIUM HYDROXIDE\PARAFFIN
     Indication: CONSTIPATION
     Dosage: 330 MG, 3X/DAY
     Route: 048
     Dates: start: 20120708
  4. NOVAMIN [Concomitant]
     Active Substance: PROCHLORPERAZINE MALEATE
     Dosage: 5 MG, 2X/DAY
     Route: 048
     Dates: start: 20120710, end: 20120809
  5. PRIMPERAN [Concomitant]
     Active Substance: METOCLOPRAMIDE HYDROCHLORIDE
     Indication: NAUSEA
     Dosage: 5 MG, 1X/DAY
     Route: 048
     Dates: start: 20120703
  6. GENINAX [Concomitant]
     Active Substance: GARENOXACIN MESYLATE
     Dosage: 200 MG, 2X/DAY
     Route: 048
     Dates: start: 20120130, end: 20121204
  7. XALKORI [Suspect]
     Active Substance: CRIZOTINIB
     Indication: NON-SMALL CELL LUNG CANCER
     Dosage: 250 MG, 2X/DAY
     Route: 048
     Dates: start: 20120709, end: 20120710
  8. FOLIAMIN [Concomitant]
     Active Substance: FOLIC ACID
     Indication: PROPHYLAXIS
     Dosage: 0.5 MG, 1X/DAY
     Route: 048
     Dates: start: 20120620, end: 20120809
  9. PREDONINE [Concomitant]
     Active Substance: PREDNISOLONE\PREDNISOLONE ACETATE\PREDNISOLONE SODIUM SUCCINATE
     Indication: NAUSEA
     Dosage: 20 MG, 1X/DAY
     Route: 048
     Dates: start: 20120705, end: 20120712

REACTIONS (3)
  - Colitis ischaemic [Recovered/Resolved]
  - Vomiting [Not Recovered/Not Resolved]
  - Nausea [Not Recovered/Not Resolved]

NARRATIVE: CASE EVENT DATE: 20120710
